FAERS Safety Report 9345475 (Version 2)
Quarter: 2013Q3

REPORT INFORMATION
  Report Type: Spontaneous
  Country: JP (occurrence: JP)
  Receive Date: 20130613
  Receipt Date: 20130711
  Transmission Date: 20140515
  Serious: Yes (Hospitalization, Other)
  Sender: FDA-Public Use
  Company Number: JP-AMGEN-JPNSP2013041420

PATIENT
  Age: 64 Year
  Sex: Male
  Weight: 68 kg

DRUGS (16)
  1. VECTIBIX [Suspect]
     Indication: COLON CANCER
     Dosage: 440 MG, Q2WK
     Route: 041
     Dates: start: 20130508, end: 20130522
  2. VECTIBIX [Suspect]
     Dosage: 440 MG, Q2WK
     Route: 041
     Dates: start: 20130619
  3. AVASTIN /01555201/ [Suspect]
     Indication: COLON CANCER
     Dosage: UNK
     Route: 041
     Dates: start: 20121112
  4. AVASTIN /01555201/ [Suspect]
     Dosage: UNK
     Route: 041
     Dates: start: 20130213, end: 20130424
  5. TOPOTECIN [Concomitant]
     Indication: COLON CANCER
     Dosage: 275 MG, Q2WK
     Route: 041
     Dates: start: 20130508, end: 20130522
  6. TOPOTECIN [Concomitant]
     Dosage: 275 MG, Q2WK
     Route: 041
     Dates: start: 20130619
  7. 5 FU [Concomitant]
     Indication: COLON CANCER
     Dosage: 700 MG, Q2WK
     Route: 040
     Dates: start: 20130508, end: 20130522
  8. 5 FU [Concomitant]
     Dosage: 4000 MG, Q2WK
     Route: 041
     Dates: start: 20130508, end: 20130524
  9. 5 FU [Concomitant]
     Dosage: 700 MG, Q2WK
     Route: 040
     Dates: start: 20130619
  10. 5 FU [Concomitant]
     Dosage: 4000 MG, Q2WK
     Route: 041
     Dates: start: 20130619
  11. ISOVORIN                           /00566702/ [Concomitant]
     Indication: COLON CANCER
     Dosage: 350 MG, Q2WK
     Route: 041
     Dates: start: 20130508, end: 20130522
  12. ISOVORIN                           /00566702/ [Concomitant]
     Dosage: 350 MG, Q2WK
     Route: 041
     Dates: start: 20130619
  13. ALOXI [Concomitant]
     Dosage: 0.75 MG, Q2WK
     Route: 041
     Dates: start: 20130508, end: 20130522
  14. ALOXI [Concomitant]
     Dosage: 0.75 MG, Q2WK
     Route: 041
     Dates: start: 20130619
  15. ORGADRONE                          /00016002/ [Concomitant]
     Dosage: 3 DF, Q2WK
     Route: 042
     Dates: start: 20130508, end: 20130522
  16. ORGADRONE                          /00016002/ [Concomitant]
     Dosage: 3 DF, Q2WK
     Route: 042
     Dates: start: 20130619

REACTIONS (2)
  - Convulsion [Unknown]
  - Deep vein thrombosis [Recovering/Resolving]
